FAERS Safety Report 21872818 (Version 1)
Quarter: 2023Q1

REPORT INFORMATION
  Report Type: Spontaneous
  Country: US (occurrence: US)
  Receive Date: 20230117
  Receipt Date: 20230117
  Transmission Date: 20230418
  Serious: Yes (Death, Hospitalization)
  Sender: FDA-Public Use
  Company Number: US-BAYER-2023A002821

PATIENT
  Age: 55 Year
  Sex: Male

DRUGS (5)
  1. ASPIRIN [Suspect]
     Active Substance: ASPIRIN
     Dosage: UNK
     Route: 048
  2. AMLODIPINE [Suspect]
     Active Substance: AMLODIPINE BESYLATE
  3. CITALOPRAM [Suspect]
     Active Substance: CITALOPRAM HYDROBROMIDE
  4. METHAMPHETAMINE HYDROCHLORIDE [Suspect]
     Active Substance: METHAMPHETAMINE HYDROCHLORIDE
  5. DORAVIRINE\LAMIVUDINE\TENOFOVIR DISOPROXIL FUMARATE [Suspect]
     Active Substance: DORAVIRINE\LAMIVUDINE\TENOFOVIR DISOPROXIL FUMARATE

REACTIONS (2)
  - Completed suicide [Fatal]
  - Toxicity to various agents [Fatal]
